FAERS Safety Report 11121407 (Version 2)
Quarter: 2015Q2

REPORT INFORMATION
  Report Type: Report from Study
  Country: US (occurrence: US)
  Receive Date: 20150519
  Receipt Date: 20150609
  Transmission Date: 20150821
  Serious: No
  Sender: FDA-Public Use
  Company Number: US-AMGEN-USASL2015047237

PATIENT
  Age: 31 Year
  Sex: Female
  Weight: 54 kg

DRUGS (4)
  1. ENBREL [Suspect]
     Active Substance: ETANERCEPT
     Indication: ANKYLOSING SPONDYLITIS
     Dosage: 50 MG, QWK
     Route: 065
     Dates: start: 2011, end: 20130425
  2. TYLENOL [Concomitant]
     Active Substance: ACETAMINOPHEN
     Dosage: UNK UNK, AS NECESSARY
  3. IRON [Concomitant]
     Active Substance: IRON
     Dosage: DAILY
  4. VITAMIN D                          /00107901/ [Concomitant]
     Active Substance: ERGOCALCIFEROL
     Dosage: 2000 IU, DAILY

REACTIONS (2)
  - Spondylitis [Unknown]
  - Pregnancy [Recovered/Resolved]

NARRATIVE: CASE EVENT DATE: 20130513
